FAERS Safety Report 24551541 (Version 1)
Quarter: 2024Q4

REPORT INFORMATION
  Report Type: Spontaneous
  Country: US (occurrence: US)
  Receive Date: 20241026
  Receipt Date: 20241026
  Transmission Date: 20250114
  Serious: Yes (Hospitalization, Other)
  Sender: TEVA
  Company Number: US-TEVA-VS-3257809

PATIENT
  Age: 78 Year
  Sex: Female
  Weight: 57.4 kg

DRUGS (7)
  1. AUSTEDO XR [Suspect]
     Active Substance: DEUTETRABENAZINE
     Indication: Tardive dyskinesia
     Dosage: TIME INTERVAL: 0.33333333 DAYS
     Route: 048
     Dates: end: 2024
  2. AUSTEDO XR [Suspect]
     Active Substance: DEUTETRABENAZINE
     Indication: Tardive dyskinesia
     Dosage: (4-WEEK PATIENT TITRATION KIT)
     Route: 048
     Dates: start: 2024, end: 2024
  3. AUSTEDO XR [Suspect]
     Active Substance: DEUTETRABENAZINE
     Indication: Tardive dyskinesia
     Dosage: (4-WEEK PATIENT TITRATION KIT)
     Route: 048
     Dates: start: 2024, end: 2024
  4. AUSTEDO XR [Suspect]
     Active Substance: DEUTETRABENAZINE
     Indication: Tardive dyskinesia
     Dosage: (4-WEEK PATIENT TITRATION KIT)
     Route: 048
     Dates: start: 2024, end: 2024
  5. AUSTEDO [Suspect]
     Active Substance: DEUTETRABENAZINE
     Indication: Tardive dyskinesia
     Route: 048
     Dates: start: 202410
  6. BUSPIRONE [Concomitant]
     Active Substance: BUSPIRONE HYDROCHLORIDE
     Indication: Product used for unknown indication
  7. DULOXETINE [Concomitant]
     Active Substance: DULOXETINE
     Indication: Product used for unknown indication

REACTIONS (5)
  - Tardive dyskinesia [Recovering/Resolving]
  - Memory impairment [Unknown]
  - Product complaint [Unknown]
  - Loss of personal independence in daily activities [Recovering/Resolving]
  - Somnolence [Recovering/Resolving]

NARRATIVE: CASE EVENT DATE: 20240101
